FAERS Safety Report 9377049 (Version 2)
Quarter: 2013Q3

REPORT INFORMATION
  Report Type: Report from Study
  Country: BE (occurrence: BE)
  Receive Date: 20130701
  Receipt Date: 20130724
  Transmission Date: 20140515
  Serious: Yes (Life-Threatening, Hospitalization)
  Sender: FDA-Public Use
  Company Number: BE-GENZYME-CLOF-1002693

PATIENT
  Age: 67 Year
  Sex: Female
  Weight: 58 kg

DRUGS (6)
  1. EVOLTRA [Suspect]
     Indication: ACUTE LYMPHOCYTIC LEUKAEMIA
     Dosage: 46.97 MG, INDUCTION CYCLE 1
     Route: 042
     Dates: start: 20130601, end: 20130605
  2. ADRIAMYCIN [Suspect]
     Indication: ACUTE LYMPHOCYTIC LEUKAEMIA
     Dosage: 63.42 MG, INDUCTION CYCLE 1
     Route: 042
     Dates: start: 20130615
  3. PREDNISOLONE [Suspect]
     Indication: ACUTE LYMPHOCYTIC LEUKAEMIA
     Dosage: 31.71 MG, INDUCTION CYCLE 1
     Route: 048
     Dates: start: 20130608
  4. VINCRISTINE [Suspect]
     Indication: ACUTE LYMPHOCYTIC LEUKAEMIA
     Dosage: 1.00 MG, INDUCTION CYCLE 1
     Route: 042
     Dates: start: 20130608
  5. METHOTREXATE [Suspect]
     Indication: ACUTE LYMPHOCYTIC LEUKAEMIA
     Dosage: 15 MG, INDUCTION CYCLE 1
     Route: 037
     Dates: start: 20130611
  6. CATAPRESSAN [Concomitant]
     Indication: HYPERTENSION
     Dosage: 150 MCG, UNK
     Route: 058

REACTIONS (1)
  - Posterior reversible encephalopathy syndrome [Recovered/Resolved with Sequelae]
